FAERS Safety Report 4344783-8 (Version None)
Quarter: 2004Q2

REPORT INFORMATION
  Report Type: 
  Country: None (occurrence: None)
  Receive Date: 20040420
  Receipt Date: 20040413
  Transmission Date: 20050107
  Serious: Yes (Hospitalization)
  Sender: FDA-Public Use
  Company Number: 2004024958

PATIENT
  Age: 78 Year
  Sex: Male

DRUGS (3)
  1. LIPITOR [Suspect]
     Indication: HYPERLIPIDAEMIA
     Dosage: 10 MG (DAILY), ORAL
     Route: 048
     Dates: start: 20000704, end: 20040405
  2. ACETYLSALICYLIC ACID SRT [Suspect]
     Indication: ILL-DEFINED DISORDER
     Dosage: 100 MG (DAILY), ORAL
     Route: 048
     Dates: start: 20040317, end: 20040405
  3. TAMSULOSIN HYDROCHLORIDE (TAMSULOSIN HYDROCHLORIDE) [Concomitant]

REACTIONS (4)
  - AUTOIMMUNE DISORDER [None]
  - LYMPHOCYTE PERCENTAGE DECREASED [None]
  - PLATELET COUNT DECREASED [None]
  - PYREXIA [None]
